FAERS Safety Report 5373554-9 (Version None)
Quarter: 2007Q2

REPORT INFORMATION
  Report Type: 
  Country: None (occurrence: None)
  Receive Date: 20070628
  Receipt Date: 20070622
  Transmission Date: 20071010
  Serious: Yes (Hospitalization)
  Sender: FDA-Public Use
  Company Number: B0476946A

PATIENT
  Age: 72 Year
  Sex: Male

DRUGS (4)
  1. AMOXICILLIN TRIHYDRATE [Suspect]
     Indication: HELICOBACTER INFECTION
     Dosage: 750MG TWICE PER DAY
     Route: 048
     Dates: start: 20070402, end: 20070409
  2. PARIET [Suspect]
     Indication: HELICOBACTER INFECTION
     Dosage: 10MG TWICE PER DAY
     Route: 048
     Dates: start: 20070402, end: 20070409
  3. CLARITHROMYCIN [Suspect]
     Indication: HELICOBACTER INFECTION
     Dosage: 400MG TWICE PER DAY
     Route: 048
     Dates: start: 20070402, end: 20070409
  4. MIYA BM [Concomitant]
     Indication: HELICOBACTER INFECTION
     Route: 048
     Dates: start: 20070402, end: 20070409

REACTIONS (5)
  - EYE DISORDER [None]
  - MUCOUS MEMBRANE DISORDER [None]
  - PRURITUS [None]
  - RASH [None]
  - STEVENS-JOHNSON SYNDROME [None]
